FAERS Safety Report 20701664 (Version 1)
Quarter: 2022Q2

REPORT INFORMATION
  Report Type: Spontaneous
  Country: US (occurrence: US)
  Receive Date: 20220412
  Receipt Date: 20220412
  Transmission Date: 20220721
  Serious: No
  Sender: FDA-Public Use
  Company Number: US-PFIZER INC-2021767310

PATIENT
  Age: 63 Year
  Sex: Female
  Weight: 56.7 kg

DRUGS (1)
  1. LATANOPROST [Suspect]
     Active Substance: LATANOPROST
     Indication: Pigmentary glaucoma
     Dosage: 0.005% ONE DROP EACH EYE NIGHTLY
     Route: 047
     Dates: end: 202105

REACTIONS (1)
  - Drug ineffective [Unknown]
